FAERS Safety Report 20740108 (Version 1)
Quarter: 2022Q2

REPORT INFORMATION
  Report Type: Spontaneous
  Country: US (occurrence: None)
  Receive Date: 20220422
  Receipt Date: 20220422
  Transmission Date: 20220721
  Serious: No
  Sender: FDA-Public Use
  Company Number: 2022A106272

PATIENT
  Age: 65 Year
  Sex: Male
  Weight: 88.5 kg

DRUGS (2)
  1. PULMICORT FLEXHALER [Suspect]
     Active Substance: BUDESONIDE
     Indication: Asthma
     Dosage: 90 MCG, 60 DOSE, ONE PUFF ONCE A DAY,90 UG/D, SOMETIMES TWO PUFFS A DAY
     Route: 055
  2. PULMICORT FLEXHALER [Suspect]
     Active Substance: BUDESONIDE
     Indication: Dyspnoea
     Dosage: 90 MCG, 60 DOSE, ONE PUFF ONCE A DAY,90 UG/D, SOMETIMES TWO PUFFS A DAY
     Route: 055

REACTIONS (7)
  - Dyspnoea [Unknown]
  - Cough [Unknown]
  - Off label use [Unknown]
  - Device use issue [Unknown]
  - Intentional device misuse [Unknown]
  - Wrong technique in device usage process [Unknown]
  - Device malfunction [Unknown]
